FAERS Safety Report 15681242 (Version 1)
Quarter: 2018Q4

REPORT INFORMATION
  Report Type: Spontaneous
  Country: BE (occurrence: BE)
  Receive Date: 20181203
  Receipt Date: 20181203
  Transmission Date: 20190205
  Serious: Yes (Other)
  Sender: FDA-Public Use
  Company Number: BE-SA-2018SA320502

PATIENT
  Sex: Female

DRUGS (3)
  1. AUBAGIO [Suspect]
     Active Substance: TERIFLUNOMIDE
     Dosage: UNK
     Route: 065
     Dates: start: 201605
  2. TECFIDERA [Concomitant]
     Active Substance: DIMETHYL FUMARATE
  3. REBIF [Concomitant]
     Active Substance: INTERFERON BETA-1A

REACTIONS (3)
  - Exposure during pregnancy [Unknown]
  - Breast cancer [Unknown]
  - Foetal death [Unknown]
